FAERS Safety Report 8143597-0 (Version None)
Quarter: 2012Q1

REPORT INFORMATION
  Report Type: 
  Country: None (occurrence: None)
  Receive Date: 20120217
  Receipt Date: 20111202
  Transmission Date: 20120608
  Serious: No
  Sender: FDA-Public Use
  Company Number: US-GLAXOSMITHKLINE-A0956482A

PATIENT
  Age: 60 Year
  Sex: Female

DRUGS (16)
  1. POTASSIUM CHLORIDE [Concomitant]
  2. MAGNESIUM [Concomitant]
  3. DIAZEPAM [Concomitant]
  4. ZOCOR [Concomitant]
  5. EXTRA STRENGTH TYLENOL [Concomitant]
  6. SUCRALFATE [Concomitant]
  7. OMEPRAZOLE [Concomitant]
  8. VITAMIN D [Concomitant]
  9. MULTI-VITAMIN [Concomitant]
  10. BENZTROPINE MESYLATE [Concomitant]
  11. ALLOPURINOL [Concomitant]
  12. WARFARIN [Concomitant]
  13. ENALAPRIL [Concomitant]
  14. CALCITRIOL [Concomitant]
  15. VOTRIENT [Suspect]
     Indication: RENAL CELL CARCINOMA
     Dosage: 800MG PER DAY
     Route: 048
     Dates: start: 20111028
  16. GLEEVEC [Concomitant]

REACTIONS (6)
  - DECREASED APPETITE [None]
  - CHEST PAIN [None]
  - BACK PAIN [None]
  - SPEECH DISORDER [None]
  - DYSGEUSIA [None]
  - NECK PAIN [None]
